FAERS Safety Report 20829625 (Version 4)
Quarter: 2022Q2

REPORT INFORMATION
  Report Type: Spontaneous
  Country: FR (occurrence: FR)
  Receive Date: 20220513
  Receipt Date: 20220614
  Transmission Date: 20220720
  Serious: Yes (Life-Threatening, Hospitalization, Other)
  Sender: FDA-Public Use
  Company Number: FR-ELI_LILLY_AND_COMPANY-FR202204012884

PATIENT
  Age: 55 Year
  Sex: Male
  Weight: 78 kg

DRUGS (8)
  1. DULOXETINE [Suspect]
     Active Substance: DULOXETINE
     Indication: Suicide attempt
     Dosage: UNK UNK, QD (DAILY) (BETWEEN 1.6G AND 2.4G )
     Route: 048
     Dates: start: 201803
  2. DULOXETINE [Suspect]
     Active Substance: DULOXETINE
     Indication: Depression
     Dosage: 60 MILLIGRAM, QD
     Route: 048
  3. DULOXETINE [Suspect]
     Active Substance: DULOXETINE
     Indication: Persistent depressive disorder
     Dosage: UNK, 1.6 G?2.4 G
  4. QUETIAPINE [Suspect]
     Active Substance: QUETIAPINE
     Indication: Suicide attempt
     Dosage: 1 GRAM (1 G OF QUETIAPINE INSTEAD OF THE 120 MG AND 100 MG DAILY DOSE)
     Route: 048
     Dates: start: 201803
  5. QUETIAPINE [Suspect]
     Active Substance: QUETIAPINE
     Indication: Depression
     Dosage: 50 MILLIGRAM, QD
     Route: 048
  6. LORMETAZEPAM [Concomitant]
     Active Substance: LORMETAZEPAM
     Indication: Depression
     Dosage: 2 MILLIGRAM, QD, 2 MG, DAILY
  7. DIAZEPAM [Concomitant]
     Active Substance: DIAZEPAM
     Indication: Depression
     Dosage: 10 MILLIGRAM, QD, 10 MG, DAILY
  8. CYAMEMAZINE [Concomitant]
     Active Substance: CYAMEMAZINE
     Indication: Depression
     Dosage: 25 MILLIGRAM, QD, 25 MG, DAILY

REACTIONS (9)
  - Miosis [Recovered/Resolved]
  - Suicide attempt [Unknown]
  - Hyperhidrosis [Recovered/Resolved]
  - Tachycardia [Recovered/Resolved]
  - Coma [Recovered/Resolved]
  - Acute respiratory distress syndrome [Recovered/Resolved]
  - Hypotension [Recovered/Resolved]
  - Intentional overdose [Unknown]
  - Toxicity to various agents [Unknown]

NARRATIVE: CASE EVENT DATE: 20180301
